FAERS Safety Report 8743445 (Version 2)
Quarter: 2012Q4

REPORT INFORMATION
  Report Type: 
  Country: IT (occurrence: CH)
  Receive Date: 20120824
  Receipt Date: 20120829
  Transmission Date: 20130627
  Serious: Yes (Hospitalization)
  Sender: FDA-Public Use
  Company Number: CH-FRI-1000038118

PATIENT
  Sex: Male

DRUGS (13)
  1. NEBIVOLOL [Suspect]
     Indication: HYPERTENSIVE HEART DISEASE
     Dosage: 2.5 mg
     Route: 048
     Dates: end: 20120621
  2. NEBIVOLOL [Suspect]
     Indication: HYPERTENSIVE HEART DISEASE
     Dosage: 2.5 mg
     Route: 048
     Dates: start: 20120626
  3. ATACAND [Suspect]
     Indication: HYPERTENSIVE HEART DISEASE
     Dosage: 8 mg
     Route: 048
     Dates: end: 20120621
  4. SPIRONOLACTONE [Suspect]
     Indication: HYPERTENSIVE HEART DISEASE
     Dosage: 25 mg
     Route: 048
     Dates: end: 20120621
  5. MEPHANOL [Concomitant]
     Dosage: 300 mg
     Route: 048
  6. ASPIRIN CARDIO [Concomitant]
     Dosage: 100 mg
     Route: 048
  7. TORASEMIDE [Concomitant]
     Dosage: 50 mg
     Route: 048
  8. SORTIS [Concomitant]
     Dosage: 40 mg
     Route: 048
  9. LANTUS [Concomitant]
     Dosage: 20 IU
     Route: 058
  10. HUMALOG [Concomitant]
     Route: 058
  11. VI-DE 3 [Concomitant]
     Dosage: 4500 IU
     Route: 048
  12. CALCIMAGON D3 [Concomitant]
     Route: 048
  13. MARCOUMAR [Concomitant]
     Route: 048
     Dates: start: 201205

REACTIONS (6)
  - Hyperkalaemia [Recovered/Resolved]
  - Bradycardia [Recovered/Resolved]
  - Renal failure chronic [Recovered/Resolved]
  - Hypotension [Recovered/Resolved]
  - Dyspnoea [Recovered/Resolved]
  - Malaise [Recovered/Resolved]
